FAERS Safety Report 8392295-7 (Version None)
Quarter: 2012Q2

REPORT INFORMATION
  Report Type: 
  Country: None (occurrence: None)
  Receive Date: 20120529
  Receipt Date: 20120514
  Transmission Date: 20120825
  Serious: Yes (Life-Threatening, Hospitalization)
  Sender: FDA-Public Use
  Company Number: US-ROCHE-407875

PATIENT
  Age: 10 Year
  Sex: Male

DRUGS (5)
  1. AZITHROMYCIN [Suspect]
     Indication: RESPIRATORY DISTRESS
     Route: 048
  2. ROCEPHIN [Suspect]
     Indication: RESPIRATORY DISTRESS
     Route: 042
  3. VANCOMYCIN [Suspect]
     Indication: RESPIRATORY DISTRESS
     Route: 042
  4. ALBUTEROL [Suspect]
     Indication: COUGH
     Dosage: TAKEN ONCE.
     Route: 055
  5. CEFUROXIME AXETIL [Suspect]
     Indication: RESPIRATORY DISTRESS
     Route: 048

REACTIONS (5)
  - CARDIOGENIC SHOCK [None]
  - HEART RATE DECREASED [None]
  - MYOCARDIAL ISCHAEMIA [None]
  - HAEMOLYTIC ANAEMIA [None]
  - HAEMOLYSIS [None]
